FAERS Safety Report 10792265 (Version 2)
Quarter: 2015Q2

REPORT INFORMATION
  Report Type: Spontaneous
  Country: US (occurrence: US)
  Receive Date: 20150213
  Receipt Date: 20150511
  Transmission Date: 20150821
  Serious: Yes (Hospitalization)
  Sender: FDA-Public Use
  Company Number: US-ELI_LILLY_AND_COMPANY-US201502001842

PATIENT
  Sex: Female

DRUGS (7)
  1. MAGNESIUM OXIDE. [Concomitant]
     Active Substance: MAGNESIUM OXIDE
  2. CIPROFLOXACIN. [Concomitant]
     Active Substance: CIPROFLOXACIN
  3. POTASSIUM                          /07939101/ [Concomitant]
  4. AMOXICILLIN. [Concomitant]
     Active Substance: AMOXICILLIN
  5. ADCIRCA [Suspect]
     Active Substance: TADALAFIL
     Indication: PULMONARY ARTERIAL HYPERTENSION
     Dosage: 40 MG, QD
     Route: 065
  6. BOSENTAN [Concomitant]
     Active Substance: BOSENTAN\BOSENTAN MONOHYDRATE
  7. LASIX [Concomitant]
     Active Substance: FUROSEMIDE

REACTIONS (4)
  - Cellulitis [Recovered/Resolved]
  - International normalised ratio increased [Unknown]
  - Chest pain [Unknown]
  - Abscess [Recovered/Resolved]
